FAERS Safety Report 9827061 (Version 1)
Quarter: 2014Q1

REPORT INFORMATION
  Report Type: Spontaneous
  Country: US (occurrence: US)
  Receive Date: 20140117
  Receipt Date: 20140117
  Transmission Date: 20141002
  Serious: No
  Sender: FDA-Public Use
  Company Number: US-GLAXOSMITHKLINE-A1028894A

PATIENT
  Age: 90 Year
  Sex: Male

DRUGS (1)
  1. PROMACTA [Suspect]
     Indication: ILL-DEFINED DISORDER
     Dosage: 50MG UNKNOWN

REACTIONS (1)
  - Treatment noncompliance [Not Recovered/Not Resolved]
